FAERS Safety Report 9199625 (Version 2)
Quarter: 2013Q2

REPORT INFORMATION
  Report Type: Spontaneous
  Country: US (occurrence: US)
  Receive Date: 20130329
  Receipt Date: 20130506
  Transmission Date: 20140414
  Serious: Yes (Death, Other)
  Sender: FDA-Public Use
  Company Number: US-PFIZER INC-2013100148

PATIENT
  Age: 52 Year
  Sex: Male
  Weight: 43.08 kg

DRUGS (11)
  1. CELEBREX [Suspect]
     Indication: INFLAMMATION
     Dosage: 200 MG, 3X/DAY
     Route: 048
     Dates: start: 1981
  2. CELEBREX [Suspect]
     Indication: SHOULDER OPERATION
     Dosage: 200 MG, 4 TIMES A DAY
  3. CELEBREX [Suspect]
     Indication: KNEE OPERATION
  4. CELEBREX [Suspect]
     Indication: SURGERY
  5. CELEBREX [Suspect]
     Indication: PAIN
  6. HYDROCODONE [Concomitant]
     Dosage: UNK
  7. NEXIUM [Concomitant]
     Dosage: UNK
  8. PLAVIX [Concomitant]
     Dosage: UNK
  9. SIMVASTATIN [Concomitant]
     Dosage: UNK
  10. NITROSTAT [Concomitant]
     Dosage: UNK
  11. BABY ASPIRIN [Concomitant]
     Dosage: UNK

REACTIONS (2)
  - Coronary artery disease [Fatal]
  - Arthropathy [Unknown]
